FAERS Safety Report 9188685 (Version 1)
Quarter: 2013Q1

REPORT INFORMATION
  Report Type: Spontaneous
  Country: US (occurrence: US)
  Receive Date: 20130325
  Receipt Date: 20130325
  Transmission Date: 20140127
  Serious: Yes (Other)
  Sender: FDA-Public Use
  Company Number: US-ELI_LILLY_AND_COMPANY-US201109008753

PATIENT
  Sex: Female

DRUGS (6)
  1. FORTEO [Suspect]
     Indication: OSTEOPOROSIS
     Dosage: 20 UG, QD
     Route: 065
  2. FORTEO [Suspect]
     Dosage: 20 UG, QD
  3. VITAMIN D [Concomitant]
  4. FOLIC ACID [Concomitant]
  5. CALCIUM [Concomitant]
  6. FLEXERIL [Concomitant]

REACTIONS (9)
  - Loss of consciousness [Unknown]
  - Application site pain [Unknown]
  - Injection site irritation [Unknown]
  - Blood pressure increased [Unknown]
  - Back pain [Unknown]
  - Arthralgia [Unknown]
  - Abasia [Unknown]
  - Dizziness [Unknown]
  - Rheumatoid arthritis [Unknown]
